FAERS Safety Report 5304975-8 (Version None)
Quarter: 2007Q2

REPORT INFORMATION
  Report Type: 
  Country: None (occurrence: None)
  Receive Date: 20070423
  Receipt Date: 20070411
  Transmission Date: 20071010
  Serious: No
  Sender: FDA-Public Use
  Company Number: FR-PFIZER INC-2007025581

PATIENT
  Age: 22 Year
  Sex: Female

DRUGS (6)
  1. ATARAX [Suspect]
     Indication: ANXIETY
     Dosage: DAILY DOSE:300MG
     Route: 048
     Dates: start: 20070201, end: 20070201
  2. ATARAX [Suspect]
     Dosage: DAILY DOSE:200MG
     Route: 048
     Dates: start: 20070201, end: 20070201
  3. ATARAX [Suspect]
     Dosage: DAILY DOSE:300MG
     Route: 048
  4. METHADONE HCL [Concomitant]
     Route: 048
  5. ESCITALOPRAM OXALATE [Concomitant]
     Route: 048
  6. MEPRONIZINE [Concomitant]
     Route: 048

REACTIONS (1)
  - DYSKINESIA [None]
